FAERS Safety Report 7479732-7 (Version None)
Quarter: 2011Q2

REPORT INFORMATION
  Report Type: 
  Country: None (occurrence: None)
  Receive Date: 20110513
  Receipt Date: 20110504
  Transmission Date: 20111010
  Serious: Yes (Other)
  Sender: FDA-Public Use
  Company Number: GB-ASTRAZENECA-2011SE26179

PATIENT
  Age: 49 Year
  Sex: Female

DRUGS (4)
  1. TPN [Suspect]
  2. TPN [Suspect]
     Indication: SHORT-BOWEL SYNDROME
  3. SODIUM CHLORIDE [Concomitant]
     Route: 042
  4. OMEPRAZOLE [Suspect]
     Route: 048

REACTIONS (1)
  - ACIDOSIS HYPERCHLORAEMIC [None]
